FAERS Safety Report 9390855 (Version 1)
Quarter: 2013Q3

REPORT INFORMATION
  Report Type: Spontaneous
  Country: US (occurrence: None)
  Receive Date: 20130705
  Receipt Date: 20130705
  Transmission Date: 20140515
  Serious: Yes (Other)
  Sender: FDA-Public Use
  Company Number: None

PATIENT
  Age: 53 Year
  Sex: Male

DRUGS (1)
  1. XOLAIR 150 MG GENENTECH [Suspect]
     Indication: ASTHMA
     Route: 058
     Dates: start: 20120215

REACTIONS (2)
  - Retinal tear [None]
  - Retinal detachment [None]
